FAERS Safety Report 7522767-6 (Version None)
Quarter: 2011Q2

REPORT INFORMATION
  Report Type: 
  Country: None (occurrence: None)
  Receive Date: 20110603
  Receipt Date: 20100820
  Transmission Date: 20111010
  Serious: No
  Sender: FDA-Public Use
  Company Number: US-MYLANLABS-2011S1000168

PATIENT
  Age: 74 Year
  Sex: Male

DRUGS (5)
  1. ENBREL [Concomitant]
  2. ANTIHYPERTENSIVES [Concomitant]
  3. THYROID THERAPY [Concomitant]
  4. PROTON PUMP INHIBITORS [Concomitant]
  5. METHOTREXATE [Suspect]
     Indication: RHEUMATOID ARTHRITIS
     Dates: start: 20100303

REACTIONS (2)
  - PAIN [None]
  - FATIGUE [None]
